FAERS Safety Report 9622082 (Version 1)
Quarter: 2013Q4

REPORT INFORMATION
  Report Type: Spontaneous
  Country: US (occurrence: US)
  Receive Date: 20131015
  Receipt Date: 20131015
  Transmission Date: 20140711
  Serious: Yes (Death)
  Sender: FDA-Public Use
  Company Number: US-PFIZER INC-2013292124

PATIENT
  Age: 60 Year
  Sex: Female

DRUGS (3)
  1. INLYTA [Suspect]
     Indication: RENAL CANCER
     Dosage: 5 MG, 2X/DAY
     Dates: start: 201306
  2. INLYTA [Suspect]
     Dosage: 7 MG, 2X/DAY
     Dates: start: 2013
  3. INLYTA [Suspect]
     Dosage: 10 MG, 2X/DAY
     Dates: start: 2013

REACTIONS (1)
  - Death [Fatal]
